FAERS Safety Report 23262021 (Version 1)
Quarter: 2023Q4

REPORT INFORMATION
  Report Type: Spontaneous
  Country: US (occurrence: US)
  Receive Date: 20231205
  Receipt Date: 20231205
  Transmission Date: 20240110
  Serious: Yes (Life-Threatening, Other)
  Sender: FDA-Public Use
  Company Number: US-drreddys-LIT/USA/23/0187652

PATIENT
  Age: 58 Year
  Sex: Male

DRUGS (5)
  1. SIROLIMUS [Suspect]
     Active Substance: SIROLIMUS
     Indication: Immunosuppression
     Dosage: 3?8?NG/ML
  2. TACROLIMUS [Suspect]
     Active Substance: TACROLIMUS
     Indication: Immunosuppression
     Dosage: 6?8?NG/ML
  3. TACROLIMUS [Suspect]
     Active Substance: TACROLIMUS
     Dosage: 4?6?NG/ML
  4. PREDNISONE [Suspect]
     Active Substance: PREDNISONE
     Indication: Immunosuppression
     Dosage: 3?8?NG/ML
  5. TOCILIZUMAB [Concomitant]
     Active Substance: TOCILIZUMAB
     Indication: COVID-19 pneumonia
     Dosage: 800MG?2 DOSES

REACTIONS (6)
  - Aortic aneurysm [Unknown]
  - JC virus infection [Unknown]
  - Chronic allograft nephropathy [Unknown]
  - Graft complication [Unknown]
  - Drug ineffective [Unknown]
  - Toxicity to various agents [Unknown]
